FAERS Safety Report 5087010-9 (Version None)
Quarter: 2006Q3

REPORT INFORMATION
  Report Type: 
  Country: None (occurrence: None)
  Receive Date: 20060818
  Receipt Date: 20060807
  Transmission Date: 20061208
  Serious: Yes (Hospitalization)
  Sender: FDA-Public Use
  Company Number: 14546

PATIENT
  Age: 53 Year
  Sex: Male
  Weight: 86.1834 kg

DRUGS (14)
  1. DEXAMETHASONE [Suspect]
     Indication: PANCREATIC CARCINOMA METASTATIC
     Dosage: 20 MG FORTNIGHTLY IV
     Route: 042
     Dates: start: 20060612, end: 20060612
  2. FLUOROURACIL [Suspect]
     Indication: PANCREATIC CARCINOMA METASTATIC
     Dosage: 2400MG FORTNIGHTLY IV
     Route: 042
     Dates: start: 20060612, end: 20060612
  3. GRANISETRON [Suspect]
     Indication: PANCREATIC CARCINOMA METASTATIC
     Dosage: 1000 MICROGRAM FORTNIGHTLY IV
     Route: 042
     Dates: start: 20060612, end: 20060612
  4. LEUCOVORIN CALCIUM [Suspect]
     Indication: PANCREATIC CARCINOMA METASTATIC
     Dosage: 400 MG FORTNIGHTLY IV
     Route: 042
     Dates: start: 20060612, end: 20060612
  5. OXALIPLATIN [Suspect]
     Indication: PANCREATIC CARCINOMA METASTATIC
     Dosage: 130 MG FORTNIGHTLY IV
     Route: 042
     Dates: start: 20060612, end: 20060612
  6. AVASTIN [Suspect]
     Indication: PANCREATIC CARCINOMA METASTATIC
     Dosage: 465 MG FORTNIGHTLY IV
     Route: 042
     Dates: start: 20060612, end: 20060612
  7. LORAZEPAM [Suspect]
     Indication: PANCREATIC CARCINOMA METASTATIC
     Dosage: 1 MG FORTNIGHTLY PO
     Route: 048
     Dates: start: 20060612, end: 20060612
  8. LISINOPRIL [Concomitant]
  9. FENTANYL [Concomitant]
  10. HYDROMORPHONE HYDROCHLORIDE [Concomitant]
  11. DARBOEPOETIN ALFA [Concomitant]
  12. PROTONIX [Concomitant]
  13. PAROXETINE HYDROCHLORIDE [Concomitant]
  14. LORAZEPAM [Concomitant]

REACTIONS (9)
  - ABDOMINAL PAIN [None]
  - ANAEMIA [None]
  - ASTHENIA [None]
  - FATIGUE [None]
  - GASTRITIS EROSIVE [None]
  - HEPATIC LESION [None]
  - ILEUS [None]
  - PLATELET COUNT DECREASED [None]
  - PYREXIA [None]
